FAERS Safety Report 6045747-9 (Version None)
Quarter: 2009Q1

REPORT INFORMATION
  Report Type: 
  Country: None (occurrence: None)
  Receive Date: 20090121
  Receipt Date: 20090115
  Transmission Date: 20090719
  Serious: Yes (Life-Threatening)
  Sender: FDA-Public Use
  Company Number: JP-ROCHE-590212

PATIENT
  Age: 51 Year
  Sex: Female
  Weight: 37 kg

DRUGS (9)
  1. VESANOID [Suspect]
     Indication: ACUTE PROMYELOCYTIC LEUKAEMIA
     Route: 048
     Dates: start: 20070503, end: 20070702
  2. IDAMYCIN [Suspect]
     Indication: ACUTE PROMYELOCYTIC LEUKAEMIA
     Dosage: 68 MG IN TOTAL
     Route: 042
     Dates: start: 20070516, end: 20070519
  3. IDAMYCIN [Suspect]
     Dosage: 68 MG TOTAL
     Route: 042
     Dates: start: 20071005, end: 20071007
  4. NOVANTRONE [Suspect]
     Indication: ACUTE PROMYELOCYTIC LEUKAEMIA
     Route: 042
     Dates: start: 20070705, end: 20070707
  5. ADRIACIN [Suspect]
     Indication: ACUTE PROMYELOCYTIC LEUKAEMIA
     Dosage: 204 MG IN TOTAL
     Route: 065
     Dates: start: 20070816, end: 20070818
  6. CYLOCIDE [Suspect]
     Indication: ACUTE PROMYELOCYTIC LEUKAEMIA
     Dosage: 700MG IN TOTAL
     Route: 065
     Dates: start: 20070516, end: 20070522
  7. CYLOCIDE [Suspect]
     Dosage: 700 MG TOTAL
     Route: 065
     Dates: start: 20070705, end: 20070709
  8. CYLOCIDE [Suspect]
     Route: 065
     Dates: start: 20070816, end: 20070820
  9. CYLOCIDE [Suspect]
     Dosage: 700 MG TOTAL
     Route: 065
     Dates: start: 20071005, end: 20071009

REACTIONS (1)
  - MYELODYSPLASTIC SYNDROME [None]
